FAERS Safety Report 23378368 (Version 2)
Quarter: 2024Q2

REPORT INFORMATION
  Report Type: Spontaneous
  Country: US (occurrence: US)
  Receive Date: 20240108
  Receipt Date: 20240408
  Transmission Date: 20240716
  Serious: Yes (Other)
  Sender: FDA-Public Use
  Company Number: US-BRISTOL-MYERS SQUIBB COMPANY-2024-002742

PATIENT
  Age: 54 Year
  Sex: Female

DRUGS (1)
  1. ORENCIA [Suspect]
     Active Substance: ABATACEPT
     Indication: Product used for unknown indication
     Dosage: STRENGTH: 125, FREQUENCY: INJECT 125 MG (1 SYRINGE) SUBCUTANEOUSLY ONCE A WEEK (STORE IN REFRIGERATO
     Route: 058

REACTIONS (1)
  - Aortic occlusion [Unknown]
